FAERS Safety Report 5892236-8 (Version None)
Quarter: 2008Q3

REPORT INFORMATION
  Report Type: 
  Country: None (occurrence: None)
  Receive Date: 20080919
  Receipt Date: 20080905
  Transmission Date: 20090109
  Serious: Yes (Death, Hospitalization)
  Sender: FDA-Public Use
  Company Number: A-US2006-12364

PATIENT
  Age: 26 Year
  Sex: Male
  Weight: 136.1 kg

DRUGS (1)
  1. TRACLEER [Suspect]
     Indication: DRUG USE FOR UNKNOWN INDICATION
     Dosage: 62.5 MG BID ORAL
     Route: 048
     Dates: start: 20050801

REACTIONS (1)
  - DEATH [None]
